FAERS Safety Report 19876844 (Version 1)
Quarter: 2021Q3

REPORT INFORMATION
  Report Type: Spontaneous
  Country: US (occurrence: US)
  Receive Date: 20210923
  Receipt Date: 20210923
  Transmission Date: 20211014
  Serious: Yes (Hospitalization)
  Sender: FDA-Public Use
  Company Number: None

PATIENT
  Sex: Male
  Weight: 78.6 kg

DRUGS (2)
  1. IPILIMUMAB [Concomitant]
     Active Substance: IPILIMUMAB
  2. IPILIMUMAB (BMS?734016; MDX?010 TRANSFECTOMA?DERIVED) [Suspect]
     Active Substance: IPILIMUMAB

REACTIONS (4)
  - Pyrexia [None]
  - Constipation [None]
  - Blood sodium decreased [None]
  - Arthralgia [None]

NARRATIVE: CASE EVENT DATE: 20210920
